FAERS Safety Report 14558361 (Version 1)
Quarter: 2018Q1

REPORT INFORMATION
  Report Type: Spontaneous
  Country: US (occurrence: US)
  Receive Date: 20180221
  Receipt Date: 20180221
  Transmission Date: 20180509
  Serious: No
  Sender: FDA-Public Use
  Company Number: US-PERRIGO-17US024965

PATIENT
  Age: 90 Year
  Sex: Male
  Weight: 74.83 kg

DRUGS (2)
  1. LOPERAMIDE HYDROCHLORIDE. [Suspect]
     Active Substance: LOPERAMIDE HYDROCHLORIDE
     Indication: DIARRHOEA
     Dosage: 2 MG TO 4 MG, PRN
     Route: 048
     Dates: start: 2017, end: 20170705
  2. ASPIRIN                            /00002701/ [Concomitant]
     Active Substance: ASPIRIN
     Indication: PAIN
     Dosage: UNK
     Route: 048

REACTIONS (2)
  - Constipation [Unknown]
  - Dyschezia [Unknown]

NARRATIVE: CASE EVENT DATE: 2017
